FAERS Safety Report 9239554 (Version 6)
Quarter: 2015Q3

REPORT INFORMATION
  Report Type: Spontaneous
  Country: US (occurrence: US)
  Receive Date: 20130418
  Receipt Date: 20150831
  Transmission Date: 20151125
  Serious: No
  Sender: FDA-Public Use
  Company Number: US-009507513-1304USA008255

PATIENT
  Sex: Male
  Weight: 99.5 kg

DRUGS (3)
  1. FINASTERIDE. [Suspect]
     Active Substance: FINASTERIDE
     Indication: ALOPECIA
     Dosage: 5 MG, UNK
     Route: 048
     Dates: start: 20061206, end: 20101014
  2. FINASTERIDE. [Suspect]
     Active Substance: FINASTERIDE
     Dosage: 5 MG, UNK
     Route: 048
     Dates: start: 20110121, end: 20120206
  3. PROPECIA [Suspect]
     Active Substance: FINASTERIDE
     Indication: ALOPECIA
     Dosage: 1 MG, QD
     Route: 048
     Dates: start: 20120217, end: 20120418

REACTIONS (17)
  - Major depression [Unknown]
  - Dysthymic disorder [Unknown]
  - Depression [Unknown]
  - Drug administration error [Unknown]
  - Weight increased [Unknown]
  - Erectile dysfunction [Unknown]
  - Personality disorder [Unknown]
  - Loss of libido [Unknown]
  - Partner stress [Unknown]
  - Depression [Not Recovered/Not Resolved]
  - Cognitive disorder [Not Recovered/Not Resolved]
  - Self esteem decreased [Unknown]
  - Schizoid personality disorder [Unknown]
  - Blood testosterone decreased [Unknown]
  - Anxiety [Unknown]
  - Back pain [Unknown]
  - Sexual dysfunction [Not Recovered/Not Resolved]

NARRATIVE: CASE EVENT DATE: 20061206
